FAERS Safety Report 15913770 (Version 1)
Quarter: 2019Q1

REPORT INFORMATION
  Report Type: Spontaneous
  Country: US (occurrence: US)
  Receive Date: 20190204
  Receipt Date: 20190204
  Transmission Date: 20190417
  Serious: No
  Sender: FDA-Public Use
  Company Number: US-ABBVIE-18K-163-2455590-00

PATIENT
  Age: 64 Year
  Sex: Female
  Weight: 72.19 kg

DRUGS (8)
  1. XELJANZ XR [Suspect]
     Active Substance: TOFACITINIB CITRATE
     Indication: RHEUMATOID ARTHRITIS
     Route: 065
     Dates: start: 201507, end: 201507
  2. XELJANZ XR [Suspect]
     Active Substance: TOFACITINIB CITRATE
     Route: 065
     Dates: start: 201806, end: 201806
  3. METHOTREXATE. [Concomitant]
     Active Substance: METHOTREXATE
     Indication: ATRIAL FIBRILLATION
  4. HUMIRA [Suspect]
     Active Substance: ADALIMUMAB
     Indication: RHEUMATOID ARTHRITIS
     Route: 058
  5. XELJANZ XR [Suspect]
     Active Substance: TOFACITINIB CITRATE
     Route: 065
     Dates: start: 201507, end: 2015
  6. METHOTREXATE. [Concomitant]
     Active Substance: METHOTREXATE
     Indication: IMPLANTABLE DEFIBRILLATOR INSERTION
  7. ENBREL [Suspect]
     Active Substance: ETANERCEPT
     Indication: RHEUMATOID ARTHRITIS
     Route: 065
  8. TOPROL XL [Concomitant]
     Active Substance: METOPROLOL SUCCINATE
     Indication: IMPLANTABLE DEFIBRILLATOR INSERTION
     Dates: start: 2004

REACTIONS (4)
  - Rheumatoid arthritis [Unknown]
  - Vibratory sense increased [Unknown]
  - Blood pressure increased [Unknown]
  - Palpitations [Unknown]

NARRATIVE: CASE EVENT DATE: 201507
